FAERS Safety Report 22520747 (Version 1)
Quarter: 2023Q2

REPORT INFORMATION
  Report Type: Spontaneous
  Country: CN (occurrence: CN)
  Receive Date: 20230605
  Receipt Date: 20230605
  Transmission Date: 20230721
  Serious: Yes (Hospitalization, Other)
  Sender: FDA-Public Use
  Company Number: CN-PFIZER INC-PV202300096354

PATIENT
  Age: 71 Year
  Sex: Male
  Weight: 60 kg

DRUGS (6)
  1. VFEND [Suspect]
     Active Substance: VORICONAZOLE
     Indication: Fungal infection
     Dosage: 400 MG, 1X/DAY
     Route: 041
     Dates: start: 20230520, end: 20230520
  2. HERBALS [Suspect]
     Active Substance: HERBALS
     Indication: Anti-infective therapy
     Dosage: 10 ML, 2X/DAY
     Route: 041
     Dates: start: 20230519, end: 20230521
  3. MEROPENEM [Concomitant]
     Active Substance: MEROPENEM
     Indication: Anti-infective therapy
     Dosage: 1 G, EIGHT TIMES PER DAY
     Route: 041
     Dates: start: 20230517, end: 20230519
  4. MEROPENEM [Concomitant]
     Active Substance: MEROPENEM
     Indication: Cough
  5. MEROPENEM [Concomitant]
     Active Substance: MEROPENEM
     Indication: Productive cough
  6. MEROPENEM [Concomitant]
     Active Substance: MEROPENEM
     Indication: Pyrexia

REACTIONS (2)
  - Transaminases increased [Recovering/Resolving]
  - Off label use [Unknown]

NARRATIVE: CASE EVENT DATE: 20230520
